FAERS Safety Report 10637341 (Version 1)
Quarter: 2014Q4

REPORT INFORMATION
  Report Type: Spontaneous
  Country: US (occurrence: None)
  Receive Date: 20141204
  Receipt Date: 20141204
  Transmission Date: 20150529
  Serious: Yes (Life-Threatening, Other)
  Sender: FDA-Public Use
  Company Number: None

PATIENT
  Age: 59 Year
  Sex: Female
  Weight: 124.74 kg

DRUGS (1)
  1. LETROZOLE 2.5 MG [Suspect]
     Active Substance: LETROZOLE
     Indication: BREAST CANCER
     Route: 048
     Dates: start: 20141011, end: 20141011

REACTIONS (9)
  - Incoherent [None]
  - Dyspnoea [None]
  - Vision blurred [None]
  - Dizziness [None]
  - VIIth nerve paralysis [None]
  - Aggression [None]
  - Thinking abnormal [None]
  - Bone pain [None]
  - Cerebrovascular accident [None]

NARRATIVE: CASE EVENT DATE: 20141011
